FAERS Safety Report 8107255-0 (Version None)
Quarter: 2011Q4

REPORT INFORMATION
  Report Type: 
  Country: None (occurrence: None)
  Receive Date: 20111227
  Receipt Date: 20111121
  Transmission Date: 20120403
  Serious: Yes (Other)
  Sender: FDA-Public Use
  Company Number: PHEH2011US05325

PATIENT
  Age: 40 Year
  Sex: Female
  Weight: 57.6 kg

DRUGS (7)
  1. MAGNESIUM (MAGNESIUM) [Concomitant]
  2. TERCONAZOLE [Suspect]
     Indication: FUNGAL INFECTION
  3. MICROGESTIN (ETHINYLESTRADIOL, FERROUS FUMARATE, NORETHISTERONE ACETAT [Concomitant]
  4. ASCORBIC ACID [Concomitant]
  5. GILENYA [Suspect]
     Dosage: 0.5 MG QD ORAL
     Route: 048
  6. VITAMIN D [Concomitant]
  7. CALCIUM CARBONATE [Concomitant]

REACTIONS (5)
  - PALPITATIONS [None]
  - FUNGAL INFECTION [None]
  - VISION BLURRED [None]
  - RASH ERYTHEMATOUS [None]
  - ASTHENIA [None]
